FAERS Safety Report 10808454 (Version 1)
Quarter: 2015Q1

REPORT INFORMATION
  Report Type: Report from Study
  Country: US (occurrence: US)
  Receive Date: 20150217
  Receipt Date: 20150217
  Transmission Date: 20150721
  Serious: No
  Sender: FDA-Public Use
  Company Number: US-ABBVIE-14K-163-1247945-00

PATIENT
  Age: 51 Year
  Sex: Female

DRUGS (3)
  1. HUMIRA [Suspect]
     Active Substance: ADALIMUMAB
     Indication: RHEUMATOID ARTHRITIS
     Dates: start: 20140423
  2. UNKNOWN MEDICATIONS [Concomitant]
     Active Substance: UNSPECIFIED INGREDIENT
     Indication: PRODUCT USED FOR UNKNOWN INDICATION
  3. TYLENOL [Suspect]
     Active Substance: ACETAMINOPHEN
     Indication: HEADACHE
     Dosage: TWO TABLETS TWICE A DAY, SOMETIMES THREE TIMES A DAY

REACTIONS (4)
  - Malaise [Not Recovered/Not Resolved]
  - Headache [Not Recovered/Not Resolved]
  - Drug effect decreased [Not Recovered/Not Resolved]
  - Fatigue [Not Recovered/Not Resolved]

NARRATIVE: CASE EVENT DATE: 201404
